FAERS Safety Report 5375808-9 (Version None)
Quarter: 2007Q3

REPORT INFORMATION
  Report Type: 
  Country: None (occurrence: None)
  Receive Date: 20070701
  Receipt Date: 20070626
  Transmission Date: 20080115
  Serious: Yes (Hospitalization)
  Sender: FDA-Public Use
  Company Number: US-BRACCO-BDI-009713

PATIENT
  Age: 14 Year
  Sex: Male
  Weight: 127 kg

DRUGS (3)
  1. ISOVUE-128 [Suspect]
     Route: 042
     Dates: start: 20070608, end: 20070608
  2. ISOVUE-128 [Suspect]
     Indication: ABDOMINAL PAIN
     Route: 042
     Dates: start: 20070608, end: 20070608
  3. ISOVUE-128 [Suspect]
     Route: 042
     Dates: start: 20070608, end: 20070608

REACTIONS (2)
  - ANAPHYLACTIC REACTION [None]
  - CEREBROVASCULAR ACCIDENT [None]
